FAERS Safety Report 12404900 (Version 1)
Quarter: 2016Q2

REPORT INFORMATION
  Report Type: Report from Study
  Country: US (occurrence: US)
  Receive Date: 20160525
  Receipt Date: 20160525
  Transmission Date: 20160815
  Serious: No
  Sender: FDA-Public Use
  Company Number: PHEH2016US012734

PATIENT
  Sex: Female

DRUGS (1)
  1. AFINITOR [Suspect]
     Active Substance: EVEROLIMUS
     Indication: GANGLIOGLIOMA
     Dosage: 2 MG, QD
     Route: 048
     Dates: start: 20160429

REACTIONS (8)
  - Insomnia [Unknown]
  - Stomatitis [Recovered/Resolved]
  - Drug level decreased [Unknown]
  - Eating disorder [Unknown]
  - Decreased appetite [Unknown]
  - Mood altered [Unknown]
  - Pain in extremity [Unknown]
  - Diarrhoea [Unknown]
